FAERS Safety Report 5254876-9 (Version None)
Quarter: 2007Q1

REPORT INFORMATION
  Report Type: 
  Country: None (occurrence: None)
  Receive Date: 20070305
  Receipt Date: 20070226
  Transmission Date: 20070707
  Serious: Yes (Other)
  Sender: FDA-Public Use
  Company Number: ES-BRISTOL-MYERS SQUIBB COMPANY-13418850

PATIENT
  Age: 47 Year
  Sex: Male

DRUGS (3)
  1. ENTECAVIR [Suspect]
     Indication: HEPATITIS B
     Dates: start: 20050121
  2. ADEFOVIR DIPIVOXIL KIT [Concomitant]
     Dates: start: 20020426
  3. AMLODIPINE [Concomitant]
     Dates: start: 19990101, end: 20050514

REACTIONS (2)
  - ALANINE AMINOTRANSFERASE INCREASED [None]
  - HBV DNA INCREASED [None]
